FAERS Safety Report 8311726-1 (Version None)
Quarter: 2012Q2

REPORT INFORMATION
  Report Type: 
  Country: None (occurrence: None)
  Receive Date: 20120425
  Receipt Date: 20120313
  Transmission Date: 20120825
  Serious: Yes (Other)
  Sender: FDA-Public Use
  Company Number: US-JNJFOC-20120408072

PATIENT
  Sex: Female
  Weight: 1.98 kg

DRUGS (7)
  1. MIDRIN [Suspect]
     Indication: FOETAL EXPOSURE DURING PREGNANCY
     Route: 064
  2. TOPAMAX [Suspect]
     Route: 064
     Dates: start: 20051021
  3. MIGQUIN [Suspect]
     Indication: FOETAL EXPOSURE DURING PREGNANCY
     Route: 064
     Dates: start: 20051024
  4. TOPAMAX [Suspect]
     Indication: FOETAL EXPOSURE DURING PREGNANCY
     Route: 064
  5. TOPAMAX [Suspect]
     Dosage: NDC 50458-0641-65
     Route: 064
  6. NITROFURANTOIN [Suspect]
     Indication: FOETAL EXPOSURE DURING PREGNANCY
     Route: 064
     Dates: start: 20051129
  7. TOPAMAX [Suspect]
     Route: 064

REACTIONS (4)
  - PREMATURE BABY [None]
  - TWIN PREGNANCY [None]
  - CONGENITAL ANOMALY [None]
  - FOETAL EXPOSURE DURING PREGNANCY [None]
